FAERS Safety Report 8777497 (Version 1)
Quarter: 2012Q4

REPORT INFORMATION
  Report Type: 
  Country: US (occurrence: US)
  Receive Date: 20120910
  Receipt Date: 20120910
  Transmission Date: 20130627
  Serious: Yes (Hospitalization)
  Sender: FDA-Public Use
  Company Number: US-CELGENEUS-163-21880-12070248

PATIENT
  Sex: Male

DRUGS (3)
  1. REVLIMID [Suspect]
     Indication: MULTIPLE MYELOMA
     Dosage: 10 Milligram
     Route: 048
     Dates: start: 201001, end: 2010
  2. REVLIMID [Suspect]
     Dosage: 15-10-5mg
     Route: 048
     Dates: start: 201003, end: 2010
  3. REVLIMID [Suspect]
     Dosage: 5 Milligram
     Route: 048
     Dates: start: 201012

REACTIONS (2)
  - Unevaluable event [Unknown]
  - Fatigue [Unknown]
